FAERS Safety Report 8970584 (Version 1)
Quarter: 2012Q4

REPORT INFORMATION
  Report Type: 
  Country: US (occurrence: US)
  Receive Date: 20121218
  Receipt Date: 20121218
  Transmission Date: 20130627
  Serious: No
  Sender: FDA-Public Use
  Company Number: US-BRISTOL-MYERS SQUIBB COMPANY-17061946

PATIENT
  Sex: Female

DRUGS (1)
  1. ABILIFY TABS 2 MG [Suspect]
     Indication: BIPOLAR DISORDER
     Dosage: Unk date: Increased to 3mg and reduced to 2 mg
     Dates: start: 201110

REACTIONS (3)
  - Alopecia [Unknown]
  - Hypersomnia [Unknown]
  - Irritability [Unknown]
